FAERS Safety Report 6814128-X (Version None)
Quarter: 2010Q3

REPORT INFORMATION
  Report Type: 
  Country: None (occurrence: None)
  Receive Date: 20100702
  Receipt Date: 20100209
  Transmission Date: 20110219
  Serious: No
  Sender: FDA-Public Use
  Company Number: A0843747A

PATIENT
  Age: 46 Year
  Sex: Female

DRUGS (5)
  1. ADVAIR DISKUS 100/50 [Suspect]
     Indication: ASTHMA
     Dosage: 1PUFF TWICE PER DAY
     Route: 055
     Dates: start: 20091205
  2. DIOVAN [Concomitant]
  3. NEXIUM [Concomitant]
  4. PROZAC [Concomitant]
  5. AMBIEN [Concomitant]

REACTIONS (2)
  - CANDIDIASIS [None]
  - DRY MOUTH [None]
